FAERS Safety Report 22320704 (Version 1)
Quarter: 2023Q2

REPORT INFORMATION
  Report Type: Spontaneous
  Country: US (occurrence: US)
  Receive Date: 20230515
  Receipt Date: 20230515
  Transmission Date: 20230721
  Serious: No
  Sender: FDA-Public Use
  Company Number: US-TEVA-2023-US-2882179

PATIENT
  Age: 70 Year
  Sex: Female

DRUGS (2)
  1. PIMECROLIMUS [Suspect]
     Active Substance: PIMECROLIMUS
     Indication: Rash
     Dosage: 1%
     Route: 061
  2. DESONIDE [Concomitant]
     Active Substance: DESONIDE
     Indication: Rash
     Route: 065

REACTIONS (3)
  - Application site pain [Unknown]
  - Application site pruritus [Unknown]
  - Application site erythema [Unknown]
